FAERS Safety Report 6748500-3 (Version None)
Quarter: 2010Q2

REPORT INFORMATION
  Report Type: 
  Country: None (occurrence: None)
  Receive Date: 20100527
  Receipt Date: 20100527
  Transmission Date: 20101027
  Serious: No
  Sender: FDA-Public Use
  Company Number: None

PATIENT
  Age: 76 Year
  Sex: Female
  Weight: 71.6683 kg

DRUGS (2)
  1. TOPIRAMATE [Suspect]
     Indication: PROPHYLAXIS
     Dosage: ONE TABLET, TWO TABS, THREE TAB DAILY 1 WK  EA DOSE PO
     Route: 048
     Dates: start: 20091124, end: 20091211
  2. DIVALPROEX SODIUM [Suspect]
     Indication: HEADACHE
     Dosage: ONE TABLET DAILY PO
     Route: 048
     Dates: start: 20091217, end: 20091229

REACTIONS (3)
  - AFFECTIVE DISORDER [None]
  - RENAL FAILURE CHRONIC [None]
  - URINE ABNORMALITY [None]
